FAERS Safety Report 5822419-4 (Version None)
Quarter: 2008Q3

REPORT INFORMATION
  Report Type: 
  Country: None (occurrence: None)
  Receive Date: 20080725
  Receipt Date: 20080716
  Transmission Date: 20090109
  Serious: Yes (Life-Threatening)
  Sender: FDA-Public Use
  Company Number: JP-ASTRAZENECA-2008AP05483

PATIENT
  Age: 28388 Day
  Sex: Female
  Weight: 49 kg

DRUGS (6)
  1. IRESSA [Suspect]
     Indication: LUNG ADENOCARCINOMA
     Route: 048
     Dates: start: 20071027, end: 20071114
  2. LOXONIN [Concomitant]
     Route: 048
     Dates: start: 20071026
  3. MUCOSTA [Concomitant]
     Route: 048
     Dates: start: 20071026
  4. CYANOCOBALAMIN [Concomitant]
     Route: 048
     Dates: start: 20071026
  5. DEPAKENE [Concomitant]
     Route: 048
     Dates: start: 20071026
  6. ISOBIDE [Concomitant]
     Dosage: LIQUID MEDICINE FOR INTERNAL USE
     Route: 048
     Dates: start: 20071101, end: 20071114

REACTIONS (1)
  - HEPATITIS FULMINANT [None]
